FAERS Safety Report 9719251 (Version 1)
Quarter: 2013Q4

REPORT INFORMATION
  Report Type: Spontaneous
  Country: US (occurrence: US)
  Receive Date: 20131127
  Receipt Date: 20131127
  Transmission Date: 20140711
  Serious: Yes (Death, Other)
  Sender: FDA-Public Use
  Company Number: PHHY2013US135550

PATIENT
  Age: 14 Year
  Sex: Female

DRUGS (6)
  1. CICLOSPORIN [Suspect]
  2. MYCOPHENOLATE MOFETIL [Suspect]
  3. METHOTREXATE [Suspect]
  4. PREDNISONE [Suspect]
  5. MUROMONAB-CD3 [Suspect]
  6. TOBRAMYCIN [Concomitant]

REACTIONS (11)
  - Death [Fatal]
  - Trichodysplasia spinulosa [Recovered/Resolved]
  - Papule [Recovering/Resolving]
  - Keratosis follicular [Recovering/Resolving]
  - Skin hypertrophy [Recovering/Resolving]
  - Alopecia [Recovering/Resolving]
  - Obliterative bronchiolitis [Unknown]
  - Pseudomonas bronchitis [Unknown]
  - Diabetes mellitus [Unknown]
  - Renal failure chronic [Unknown]
  - Transplant rejection [Unknown]
